FAERS Safety Report 5077794-8 (Version None)
Quarter: 2006Q3

REPORT INFORMATION
  Report Type: 
  Country: None (occurrence: None)
  Receive Date: 20060810
  Receipt Date: 20060804
  Transmission Date: 20061208
  Serious: Yes (Hospitalization, Disabling)
  Sender: FDA-Public Use
  Company Number: US-MERCK-0608USA01267

PATIENT
  Age: 90 Year
  Sex: Female

DRUGS (1)
  1. INVANZ [Suspect]
     Indication: ABDOMINAL INFECTION
     Route: 042
     Dates: start: 20060101, end: 20060101

REACTIONS (1)
  - DEPRESSED LEVEL OF CONSCIOUSNESS [None]
